FAERS Safety Report 11253574 (Version 2)
Quarter: 2015Q3

REPORT INFORMATION
  Report Type: Report from Study
  Country: NL (occurrence: NL)
  Receive Date: 20150709
  Receipt Date: 20150721
  Transmission Date: 20151125
  Serious: Yes (Hospitalization)
  Sender: FDA-Public Use
  Company Number: NL-ROCHE-1605415

PATIENT
  Age: 65 Year
  Sex: Male
  Weight: 87 kg

DRUGS (10)
  1. BENZBROMARON [Concomitant]
     Route: 048
  2. FUROSEMIDE. [Concomitant]
     Active Substance: FUROSEMIDE
     Route: 048
  3. ALPHACALCIDOL [Concomitant]
     Active Substance: ALFACALCIDOL
     Route: 048
  4. FLUTICASON [Concomitant]
     Active Substance: FLUTICASONE\FLUTICASONE PROPIONATE
     Dosage: 0.5MG/G
     Route: 003
  5. CICLOSPORINE [Concomitant]
     Active Substance: CYCLOSPORINE
     Route: 048
  6. METOPROLOL SUCCINATE. [Concomitant]
     Active Substance: METOPROLOL SUCCINATE
     Route: 048
  7. MIRCERA [Suspect]
     Active Substance: METHOXY POLYETHYLENE GLYCOL-EPOETIN BETA
     Indication: NEPHROGENIC ANAEMIA
     Dosage: 333MCG/ML WWSP 0.3ML
     Route: 058
     Dates: start: 20150407
  8. CANDESARTAN [Concomitant]
     Active Substance: CANDESARTAN
     Route: 048
  9. FLUTICASON [Concomitant]
     Active Substance: FLUTICASONE\FLUTICASONE PROPIONATE
     Dosage: 0.05 MG/G
     Route: 003
  10. TAMSULOSINE [Concomitant]
     Active Substance: TAMSULOSIN HYDROCHLORIDE
     Route: 048

REACTIONS (1)
  - Radiation proctitis [Recovering/Resolving]

NARRATIVE: CASE EVENT DATE: 20150706
